FAERS Safety Report 10790585 (Version 4)
Quarter: 2015Q2

REPORT INFORMATION
  Report Type: Report from Study
  Country: US (occurrence: US)
  Receive Date: 20150212
  Receipt Date: 20150522
  Transmission Date: 20150821
  Serious: Yes (Hospitalization, Other)
  Sender: FDA-Public Use
  Company Number: PHEH2015US002435

PATIENT
  Age: 67 Year
  Sex: Male

DRUGS (4)
  1. PREDNISONE. [Concomitant]
     Active Substance: PREDNISONE
     Dosage: 5 OT, UNK
     Route: 065
  2. TOBI [Suspect]
     Active Substance: TOBRAMYCIN
     Dosage: UNK
  3. PREDNISONE. [Concomitant]
     Active Substance: PREDNISONE
     Indication: PRODUCT USED FOR UNKNOWN INDICATION
     Dosage: 10 OT, UNK
     Route: 065
  4. TOBI [Suspect]
     Active Substance: TOBRAMYCIN
     Indication: CHRONIC OBSTRUCTIVE PULMONARY DISEASE
     Dosage: 300 MG, BID
     Route: 055

REACTIONS (16)
  - Cough [Unknown]
  - Dyspnoea exertional [Unknown]
  - Chronic obstructive pulmonary disease [Unknown]
  - Seasonal allergy [Recovered/Resolved]
  - Pseudomonas infection [Unknown]
  - Blood pressure decreased [Unknown]
  - Hypoxia [Unknown]
  - Chills [Unknown]
  - Complications of transplanted lung [Unknown]
  - Aspergillus infection [Unknown]
  - Off label use [Unknown]
  - Pneumonia [Recovering/Resolving]
  - Infective exacerbation of bronchiectasis [Unknown]
  - Dyspnoea [Unknown]
  - Sputum discoloured [Unknown]
  - Pyrexia [Unknown]

NARRATIVE: CASE EVENT DATE: 20150123
